FAERS Safety Report 4385993-3 (Version None)
Quarter: 2004Q2

REPORT INFORMATION
  Report Type: 
  Country: None (occurrence: None)
  Receive Date: 20040628
  Receipt Date: 20040622
  Transmission Date: 20050107
  Serious: Yes (Life-Threatening, Disabling)
  Sender: FDA-Public Use
  Company Number: DK-MERCK-0406DNK00013

PATIENT
  Age: 71 Year
  Sex: Female

DRUGS (8)
  1. BENDROFLUMETHIAZIDE [Concomitant]
     Route: 065
  2. BUDESONIDE AND FORMOTEROL FUMARATE [Concomitant]
     Route: 065
  3. FENOTEROL HYDROBROMIDE AND IPRATROPIUM BROMIDE [Concomitant]
     Route: 065
  4. SINGULAIR [Suspect]
     Indication: CHRONIC OBSTRUCTIVE AIRWAYS DISEASE
     Route: 048
     Dates: start: 20040510, end: 20040515
  5. PREDNISOLONE [Concomitant]
     Indication: CHRONIC OBSTRUCTIVE AIRWAYS DISEASE
     Route: 048
     Dates: start: 20040506, end: 20040511
  6. PREDNISOLONE [Concomitant]
     Route: 048
     Dates: start: 20040512, end: 20040514
  7. PREDNISOLONE [Concomitant]
     Route: 048
     Dates: start: 20040515
  8. TERBUTALINE SULFATE [Concomitant]
     Route: 065

REACTIONS (16)
  - ABNORMAL DREAMS [None]
  - CONTUSION [None]
  - DIZZINESS [None]
  - DRY MOUTH [None]
  - FATIGUE [None]
  - GASTRIC ULCER HAEMORRHAGE [None]
  - GINGIVAL BLEEDING [None]
  - HEADACHE [None]
  - IRRITABILITY [None]
  - MELAENA [None]
  - MUSCLE CRAMP [None]
  - NIGHTMARE [None]
  - PALPITATIONS [None]
  - PERIORBITAL OEDEMA [None]
  - RESTLESSNESS [None]
  - SWELLING FACE [None]
